FAERS Safety Report 10859958 (Version 1)
Quarter: 2015Q1

REPORT INFORMATION
  Report Type: Spontaneous
  Country: US (occurrence: US)
  Receive Date: 20150223
  Receipt Date: 20150223
  Transmission Date: 20150721
  Serious: No
  Sender: FDA-Public Use
  Company Number: US-CELGENEUS-163-21880-14055252

PATIENT
  Sex: Female
  Weight: 55.39 kg

DRUGS (3)
  1. REVLIMID [Suspect]
     Active Substance: LENALIDOMIDE
     Route: 048
     Dates: start: 201308
  2. REVLIMID [Suspect]
     Active Substance: LENALIDOMIDE
     Indication: CHRONIC KIDNEY DISEASE
     Route: 048
     Dates: start: 20111229
  3. REVLIMID [Suspect]
     Active Substance: LENALIDOMIDE
     Indication: PLASMA CELL MYELOMA
     Dosage: 25-5MG
     Route: 048
     Dates: start: 201201

REACTIONS (4)
  - Blood creatinine increased [Unknown]
  - Diarrhoea [Unknown]
  - Chest pain [Unknown]
  - Palmar-plantar erythrodysaesthesia syndrome [Unknown]
